FAERS Safety Report 8581542-4 (Version None)
Quarter: 2012Q3

REPORT INFORMATION
  Report Type: 
  Country: None (occurrence: None)
  Receive Date: 20120809
  Receipt Date: 20110805
  Transmission Date: 20120928
  Serious: No
  Sender: FDA-Public Use
  Company Number: US-MUTUAL PHARMACEUTICAL COMPANY, INC.-DXCY20110012

PATIENT
  Age: 43 Year
  Sex: Female

DRUGS (11)
  1. CLARITIN [Concomitant]
     Indication: HYPERSENSITIVITY
  2. GNC WOMEN'S MULTIVITAMIN [Concomitant]
     Indication: PRODUCT USED FOR UNKNOWN INDICATION
     Route: 065
  3. COREG [Concomitant]
     Indication: CARDIAC DISORDER
     Route: 065
     Dates: start: 20080101
  4. KRILL OIL [Concomitant]
     Indication: PRODUCT USED FOR UNKNOWN INDICATION
     Route: 065
  5. ZYRTEC [Concomitant]
     Indication: SINUS DISORDER
     Route: 065
  6. ZYRTEC [Concomitant]
     Indication: HYPERSENSITIVITY
  7. DOXYCYCLINE HYCLATE [Suspect]
     Indication: ACNE
     Route: 048
     Dates: start: 20110501, end: 20110501
  8. CLARITIN [Concomitant]
     Indication: SINUS DISORDER
     Route: 065
  9. FINACEA [Concomitant]
     Indication: PRODUCT USED FOR UNKNOWN INDICATION
     Route: 065
  10. KLARON LOTION [Concomitant]
     Indication: PRODUCT USED FOR UNKNOWN INDICATION
     Route: 065
  11. MACAFEM PROBIOTIC CHEWS [Concomitant]
     Indication: PRODUCT USED FOR UNKNOWN INDICATION
     Route: 065

REACTIONS (3)
  - VOMITING [None]
  - NAUSEA [None]
  - ABDOMINAL PAIN [None]
